FAERS Safety Report 18565070 (Version 2)
Quarter: 2022Q1

REPORT INFORMATION
  Report Type: Report from Study
  Country: DE (occurrence: DE)
  Receive Date: 20201201
  Receipt Date: 20220301
  Transmission Date: 20220423
  Serious: Yes (Death, Hospitalization, Other)
  Sender: FDA-Public Use
  Company Number: DE-002147023-PHHY2019DE184455

PATIENT

DRUGS (8)
  1. RUXOLITINIB [Suspect]
     Active Substance: RUXOLITINIB
     Indication: Primary myelofibrosis
     Dosage: 40 MG, QD
     Route: 048
     Dates: start: 20180713
  2. RUXOLITINIB [Suspect]
     Active Substance: RUXOLITINIB
     Dosage: 30 MG, QD
     Route: 048
     Dates: start: 20180807, end: 20200602
  3. RUXOLITINIB [Suspect]
     Active Substance: RUXOLITINIB
     Dosage: 40 MG, QD
     Route: 048
     Dates: start: 20200603
  4. EXJADE [Concomitant]
     Active Substance: DEFERASIROX
     Indication: Iron overload
     Dosage: 720, QD
     Route: 065
     Dates: start: 20190122, end: 20190429
  5. EXJADE [Concomitant]
     Active Substance: DEFERASIROX
     Dosage: 1080, QD
     Route: 065
     Dates: start: 20190430, end: 20190917
  6. EXJADE [Concomitant]
     Active Substance: DEFERASIROX
     Dosage: 720, QD
     Route: 065
     Dates: start: 20190918, end: 20191203
  7. EXJADE [Concomitant]
     Active Substance: DEFERASIROX
     Dosage: 360, QD
     Route: 065
     Dates: start: 20191204, end: 20200602
  8. EXJADE [Concomitant]
     Active Substance: DEFERASIROX
     Dosage: 720, QD
     Route: 065
     Dates: start: 20200603

REACTIONS (21)
  - Hyperkeratosis [Not Recovered/Not Resolved]
  - Anaemia [Recovered/Resolved]
  - C-reactive protein increased [Recovered/Resolved]
  - Depression [Recovered/Resolved]
  - Insomnia [Recovered/Resolved]
  - Enterococcal infection [Recovered/Resolved]
  - Epistaxis [Recovered/Resolved]
  - Thrombocytopenia [Recovered/Resolved]
  - Haemoglobin decreased [Recovered/Resolved]
  - Pyrexia [Fatal]
  - Infection [Fatal]
  - Iron overload [Not Recovered/Not Resolved]
  - Concomitant disease aggravated [Not Recovered/Not Resolved]
  - Fungal infection [Recovered/Resolved]
  - Multiple organ dysfunction syndrome [Fatal]
  - Pneumocystis jirovecii infection [Recovered/Resolved]
  - Pneumonia [Recovered/Resolved]
  - Respiratory failure [Recovered/Resolved]
  - Pyrexia [Recovered/Resolved]
  - Salmonella sepsis [Recovered/Resolved]
  - Splenomegaly [Unknown]

NARRATIVE: CASE EVENT DATE: 20180709
